FAERS Safety Report 8320281-1 (Version None)
Quarter: 2012Q2

REPORT INFORMATION
  Report Type: 
  Country: None (occurrence: None)
  Receive Date: 20120426
  Receipt Date: 20120426
  Transmission Date: 20120825
  Serious: No
  Sender: FDA-Public Use
  Company Number: None

PATIENT
  Age: 36 Year
  Sex: Female
  Weight: 49.8957 kg

DRUGS (1)
  1. KETOROLAC TROMETHAMINE [Suspect]
     Indication: KNEE OPERATION
     Dosage: 1 8HRS
     Dates: start: 20120203, end: 20120205

REACTIONS (2)
  - VOMITING [None]
  - HALLUCINATION [None]
